FAERS Safety Report 7558872-8 (Version None)
Quarter: 2011Q2

REPORT INFORMATION
  Report Type: 
  Country: None (occurrence: None)
  Receive Date: 20110621
  Receipt Date: 20110609
  Transmission Date: 20111010
  Serious: Yes (Hospitalization, Other)
  Sender: FDA-Public Use
  Company Number: DE-AMGEN-QUU444866

PATIENT
  Age: 57 Year
  Sex: Female
  Weight: 84 kg

DRUGS (13)
  1. RAMIPRIL [Concomitant]
     Dosage: 10 MG, 1X1
  2. PREDNISOLONE [Suspect]
     Indication: RHEUMATOID ARTHRITIS
     Dosage: 7.5 MG, 1X/DAY
     Route: 048
     Dates: start: 19990101, end: 20100101
  3. VOLTAREN [Suspect]
     Indication: SPINAL CORD DISORDER
  4. PREDNISOLONE [Suspect]
     Dosage: 9-10 MG, 1X/DAY
     Dates: start: 20100901
  5. BONDIOL [Concomitant]
     Indication: OSTEOPOROSIS
     Dosage: 1 UG, 1X1 WEEKEND PAUSE
     Dates: start: 20050801
  6. PANTOPRAZOLE [Concomitant]
     Indication: GASTRITIS PROPHYLAXIS
     Dosage: 20 MG, UNK
     Dates: start: 20070101
  7. CITALOPRAM HYDROBROMIDE [Concomitant]
     Indication: PANIC ATTACK
     Dosage: 40 MG, 1X1
     Dates: start: 20090601
  8. PAROXETINE HCL [Concomitant]
     Indication: ANXIETY
     Dosage: 20 MG, 2X1
     Dates: start: 20090601
  9. HYDROCHLOROTHIAZIDE [Concomitant]
     Indication: HYPERTENSION
     Dosage: 12.5 MG, 1X1
  10. ETANERCEPT [Suspect]
     Dosage: UNK
     Dates: start: 20100811
  11. ETANERCEPT [Suspect]
     Indication: RHEUMATOID ARTHRITIS
     Dosage: 50 MG, QWK
     Route: 058
     Dates: start: 20100111, end: 20100614
  12. VOLTAREN [Suspect]
     Indication: RHEUMATOID ARTHRITIS
     Dosage: 75-150 MG
     Dates: start: 20040201, end: 20100723
  13. AMPARO [Concomitant]
     Indication: HYPERTENSION
     Dosage: 5 MG, UNK
     Dates: start: 20080901

REACTIONS (15)
  - NASOPHARYNGITIS [None]
  - ERYSIPELAS [None]
  - PROCTITIS ULCERATIVE [None]
  - ABSCESS [None]
  - SIGMOIDITIS [None]
  - GENERAL PHYSICAL HEALTH DETERIORATION [None]
  - ACUTE PRERENAL FAILURE [None]
  - INFECTION [None]
  - INJECTION SITE ERYTHEMA [None]
  - ALOPECIA [None]
  - INFLAMMATORY BOWEL DISEASE [None]
  - OEDEMA PERIPHERAL [None]
  - BURSITIS [None]
  - INJECTION SITE PRURITUS [None]
  - MIGRAINE [None]
